FAERS Safety Report 15801786 (Version 1)
Quarter: 2019Q1

REPORT INFORMATION
  Report Type: Spontaneous
  Country: US (occurrence: US)
  Receive Date: 20190109
  Receipt Date: 20190109
  Transmission Date: 20190417
  Serious: No
  Sender: FDA-Public Use
  Company Number: US-PFIZER INC-2019010883

PATIENT
  Age: 16 Year
  Sex: Male

DRUGS (3)
  1. GENOTROPIN [Suspect]
     Active Substance: SOMATROPIN
     Indication: TYPE IIA HYPERLIPIDAEMIA
  2. GENOTROPIN [Suspect]
     Active Substance: SOMATROPIN
     Indication: VITAMIN D DEFICIENCY
  3. GENOTROPIN [Suspect]
     Active Substance: SOMATROPIN
     Indication: ARNOLD-CHIARI MALFORMATION
     Dosage: 2.2 MG, DAILY

REACTIONS (9)
  - Insulin-like growth factor decreased [Unknown]
  - Blood creatinine decreased [Unknown]
  - Thyroxine free decreased [Unknown]
  - Blood urea nitrogen/creatinine ratio decreased [Unknown]
  - Haematocrit decreased [Unknown]
  - Product use in unapproved indication [Unknown]
  - Red blood cell count decreased [Unknown]
  - Vitamin D decreased [Unknown]
  - Haemoglobin decreased [Unknown]

NARRATIVE: CASE EVENT DATE: 20181228
